FAERS Safety Report 4301179-2 (Version None)
Quarter: 2004Q1

REPORT INFORMATION
  Report Type: 
  Country: None (occurrence: None)
  Receive Date: 20040218
  Receipt Date: 20020607
  Transmission Date: 20041129
  Serious: No
  Sender: FDA-Public Use
  Company Number: 2002-06-0673

PATIENT
  Sex: Male

DRUGS (1)
  1. PEG-INTRON [Suspect]
     Indication: HEPATITIS C
     Route: 058

REACTIONS (1)
  - THERAPEUTIC RESPONSE DECREASED [None]
